FAERS Safety Report 9859700 (Version 1)
Quarter: 2014Q1

REPORT INFORMATION
  Report Type: Spontaneous
  Country: HN (occurrence: HN)
  Receive Date: 20140131
  Receipt Date: 20140131
  Transmission Date: 20141002
  Serious: Yes (Other)
  Sender: FDA-Public Use
  Company Number: HN-ASTRAZENECA-2014SE05811

PATIENT
  Age: 48 Year
  Sex: Female
  Weight: 68 kg

DRUGS (4)
  1. NEXIUM [Suspect]
     Indication: GASTRITIS
     Route: 048
     Dates: start: 20131201, end: 20131231
  2. VANNAIR [Concomitant]
     Dosage: 160 MCG, 3 RESCUE DOSES, UNKNOWN
     Route: 055
  3. OLMESARTAN [Concomitant]
     Indication: HYPERTENSION
     Route: 048
     Dates: start: 20130701
  4. LORATADINE [Concomitant]
     Indication: RHINITIS ALLERGIC
     Route: 048
     Dates: start: 20130701

REACTIONS (1)
  - Respiratory disorder [Recovered/Resolved]
